FAERS Safety Report 16978926 (Version 6)
Quarter: 2020Q1

REPORT INFORMATION
  Report Type: Spontaneous
  Country: FR (occurrence: FR)
  Receive Date: 20191031
  Receipt Date: 20200217
  Transmission Date: 20200409
  Serious: Yes (Hospitalization, Disabling, Other)
  Sender: FDA-Public Use
  Company Number: FR-PFIZER INC-2019466777

PATIENT
  Age: 83 Year
  Sex: Male
  Weight: 69 kg

DRUGS (16)
  1. DOCETAXEL. [Suspect]
     Active Substance: DOCETAXEL
     Dosage: 87 MG, QCY
     Route: 041
     Dates: start: 20181210, end: 20181210
  2. ONDANSETRON [Suspect]
     Active Substance: ONDANSETRON
     Dosage: 8 MG, QCY
     Route: 042
     Dates: start: 20181210, end: 20181210
  3. RANITIDINE HYDROCHLORIDE. [Suspect]
     Active Substance: RANITIDINE HYDROCHLORIDE
     Indication: PREMEDICATION
     Dosage: 50 MG, QCY
     Route: 041
     Dates: start: 20190716, end: 20190716
  4. RAMIPRIL. [Suspect]
     Active Substance: RAMIPRIL
     Indication: HYPERTENSION
     Dosage: 5 MG, QD
     Route: 048
     Dates: start: 2016, end: 20191004
  5. KARDEGIC [Suspect]
     Active Substance: ASPIRIN DL-LYSINE
     Dosage: 75 MG (1 DF), DAILY
     Route: 048
     Dates: start: 201704, end: 20190921
  6. JEVTANA [Suspect]
     Active Substance: CABAZITAXEL
     Dosage: 43.75 UNK, QCY
     Route: 041
     Dates: start: 20190917, end: 20190917
  7. RANITIDINE HYDROCHLORIDE. [Suspect]
     Active Substance: RANITIDINE HYDROCHLORIDE
     Dosage: 50 MG, QCY
     Route: 041
     Dates: start: 20190917, end: 20190917
  8. METHYLPREDNISOLONE SODIUM SUCCINATE. [Suspect]
     Active Substance: METHYLPREDNISOLONE SODIUM SUCCINATE
     Indication: PREMEDICATION
     Dosage: 40 MG, QCY
     Route: 041
     Dates: start: 20180327, end: 20180327
  9. DEXCHLORPHENIRAMINE MALEATE. [Suspect]
     Active Substance: DEXCHLORPHENIRAMINE MALEATE
     Indication: PREMEDICATION
     Dosage: 5 MG, QCY
     Route: 042
     Dates: start: 20190716, end: 20190716
  10. DEXCHLORPHENIRAMINE MALEATE. [Suspect]
     Active Substance: DEXCHLORPHENIRAMINE MALEATE
     Dosage: 5 MG, QCY
     Route: 042
     Dates: start: 20190917, end: 20190917
  11. JEVTANA [Suspect]
     Active Substance: CABAZITAXEL
     Indication: PROSTATE CANCER
     Dosage: 43.75 MG, QCY
     Route: 041
     Dates: start: 20190716, end: 20190716
  12. METHYLPREDNISOLONE SODIUM SUCCINATE. [Suspect]
     Active Substance: METHYLPREDNISOLONE SODIUM SUCCINATE
     Dosage: 40 MG, QCY
     Route: 041
     Dates: start: 20181210, end: 20181210
  13. BISOPROLOL HEMIFUMARATE [Suspect]
     Active Substance: BISOPROLOL FUMARATE
     Indication: HYPERTENSION
     Dosage: 5 MG, QD
     Route: 048
     Dates: start: 201705, end: 201910
  14. DEGARELIX [Suspect]
     Active Substance: DEGARELIX
     Dosage: UNK
  15. DOCETAXEL. [Suspect]
     Active Substance: DOCETAXEL
     Indication: PROSTATE CANCER
     Dosage: 87 MG, QCY
     Route: 041
     Dates: start: 20180327, end: 20180327
  16. ONDANSETRON [Suspect]
     Active Substance: ONDANSETRON
     Indication: PREMEDICATION
     Dosage: 8 MG, QCY
     Route: 042
     Dates: start: 20180327, end: 20180327

REACTIONS (5)
  - Vision blurred [Not Recovered/Not Resolved]
  - Visual field defect [Not Recovered/Not Resolved]
  - Necrotising retinitis [Not Recovered/Not Resolved]
  - Retinal detachment [Recovered/Resolved with Sequelae]
  - Visual impairment [Not Recovered/Not Resolved]

NARRATIVE: CASE EVENT DATE: 2018
